FAERS Safety Report 21294835 (Version 2)
Quarter: 2022Q3

REPORT INFORMATION
  Report Type: Other
  Country: US (occurrence: US)
  Receive Date: 20220905
  Receipt Date: 20220927
  Transmission Date: 20221027
  Serious: Yes (Other)
  Sender: FDA-Public Use
  Company Number: US-GLENMARK PHARMACEUTICALS-2022GMK074015

PATIENT

DRUGS (1)
  1. ZONISAMIDE [Suspect]
     Active Substance: ZONISAMIDE
     Indication: Partial seizures
     Dosage: UNK
     Route: 048
     Dates: start: 202109, end: 202201

REACTIONS (6)
  - Clonic convulsion [Unknown]
  - Partial seizures [Unknown]
  - Condition aggravated [Unknown]
  - Recalled product administered [Unknown]
  - Recalled product [Unknown]
  - Drug ineffective [Unknown]
